FAERS Safety Report 8896119 (Version 17)
Quarter: 2014Q3

REPORT INFORMATION
  Report Type: Spontaneous
  Country: US (occurrence: US)
  Receive Date: 20121108
  Receipt Date: 20140728
  Transmission Date: 20150326
  Serious: Yes (Hospitalization, Other)
  Sender: FDA-Public Use
  Company Number: PHEH2006US015708

PATIENT
  Age: 69 Year
  Sex: Female
  Weight: 84.81 kg

DRUGS (40)
  1. AREDIA [Suspect]
     Active Substance: PAMIDRONATE DISODIUM
     Indication: PLASMA CELL MYELOMA
     Route: 041
     Dates: end: 200601
  2. ZESTRIL [Concomitant]
     Active Substance: LISINOPRIL
  3. FUROSEMIDE. [Concomitant]
     Active Substance: FUROSEMIDE
  4. ALTACE [Concomitant]
     Active Substance: RAMIPRIL
     Dosage: 10 MG,
  5. HYDROCHLOROTHIAZIDE. [Concomitant]
     Active Substance: HYDROCHLOROTHIAZIDE
  6. CRESTOR [Concomitant]
     Active Substance: ROSUVASTATIN CALCIUM
  7. LASIX [Concomitant]
     Active Substance: FUROSEMIDE
  8. PHENERGAN [Concomitant]
     Active Substance: PROMETHAZINE HYDROCHLORIDE
     Dosage: 25 MG, ONCE/SINGLE
  9. GABAPENTIN. [Concomitant]
     Active Substance: GABAPENTIN
     Dosage: 300 MG, TID
  10. WARFARIN [Concomitant]
     Active Substance: WARFARIN
  11. ZINC [Concomitant]
     Active Substance: ZINC\ZINC CHLORIDE
  12. ASPIRIN. [Concomitant]
     Active Substance: ASPIRIN
  13. IMODIUM [Concomitant]
     Active Substance: LOPERAMIDE HYDROCHLORIDE
  14. POTASSIUM CHLORIDE. [Concomitant]
     Active Substance: POTASSIUM CHLORIDE
  15. CAL-MAG [Concomitant]
  16. FENTANYL. [Concomitant]
     Active Substance: FENTANYL
     Dosage: 200 UG,
  17. CODEINE [Suspect]
     Active Substance: CODEINE
  18. ALPRAZOLAM. [Concomitant]
     Active Substance: ALPRAZOLAM
  19. CLARITIN [Concomitant]
     Active Substance: LORATADINE
  20. CROCIN [Concomitant]
     Active Substance: ACETAMINOPHEN
     Dates: start: 20070124
  21. SYNTHROID [Concomitant]
     Active Substance: LEVOTHYROXINE SODIUM
  22. MAGNESIUM [Concomitant]
     Active Substance: MAGNESIUM
  23. MULTIVITAMINS [Concomitant]
     Active Substance: VITAMINS
  24. VERSED [Concomitant]
     Active Substance: MIDAZOLAM HYDROCHLORIDE
     Dosage: 3 MG,
  25. BORTEZOMIB [Concomitant]
     Active Substance: BORTEZOMIB
  26. JANUVIA [Concomitant]
     Active Substance: SITAGLIPTIN PHOSPHATE
     Dosage: 100 MG, QD
  27. ZOMETA [Suspect]
     Active Substance: ZOLEDRONIC ACID
     Dosage: 3 MG, UNK
     Route: 042
  28. AMOXICILLIN. [Concomitant]
     Active Substance: AMOXICILLIN
     Dosage: 500 MG,
  29. IMDUR [Concomitant]
     Active Substance: ISOSORBIDE MONONITRATE
  30. SELENIUM [Concomitant]
     Active Substance: SELENIUM
  31. PREMARIN [Concomitant]
     Active Substance: ESTROGENS, CONJUGATED
  32. LOSARTAN [Concomitant]
     Active Substance: LOSARTAN
  33. REVLIMID [Concomitant]
     Active Substance: LENALIDOMIDE
     Dosage: 10 MG, QD
     Route: 048
  34. ZOMETA [Suspect]
     Active Substance: ZOLEDRONIC ACID
     Indication: PLASMA CELL MYELOMA
     Dosage: 4 MG, QMO
     Route: 042
  35. BIOTIN [Suspect]
     Active Substance: BIOTIN
  36. CHROMIUM [Concomitant]
     Active Substance: CHROMIC CHLORIDE\CHROMIUM
  37. XANAX [Concomitant]
     Active Substance: ALPRAZOLAM
  38. VANCOMYCIN [Concomitant]
     Active Substance: VANCOMYCIN
  39. ACYCLOVIR. [Concomitant]
     Active Substance: ACYCLOVIR
     Dosage: 400 MG, ONCE/SINGLE
  40. DECADRON [Concomitant]
     Active Substance: DEXAMETHASONE

REACTIONS (138)
  - Pleural effusion [Unknown]
  - Electrocardiogram QRS complex abnormal [Unknown]
  - Atrial flutter [Recovering/Resolving]
  - Dental caries [Unknown]
  - Atrial fibrillation [Recovered/Resolved]
  - Rectal haemorrhage [Unknown]
  - Ventricular extrasystoles [Unknown]
  - Tachycardia [Unknown]
  - Irritable bowel syndrome [Unknown]
  - Type 2 diabetes mellitus [Unknown]
  - Osteoporosis [Unknown]
  - Oropharyngeal pain [Unknown]
  - Tooth loss [Unknown]
  - Scoliosis [Unknown]
  - Sinus arrhythmia [Unknown]
  - Spinal compression fracture [Unknown]
  - Nausea [Unknown]
  - Atrioventricular block [Unknown]
  - Deformity [Unknown]
  - Emotional distress [Unknown]
  - Life expectancy shortened [Unknown]
  - Oral disorder [Unknown]
  - Dyspnoea exertional [Unknown]
  - Chronic sinusitis [Unknown]
  - Diverticulitis [Unknown]
  - Febrile neutropenia [Recovered/Resolved]
  - Osteolysis [Unknown]
  - Bronchiectasis [Unknown]
  - Cardiac murmur [Unknown]
  - Neoplasm progression [Unknown]
  - Upper respiratory tract infection [Unknown]
  - Intervertebral disc degeneration [Unknown]
  - Dyslipidaemia [Unknown]
  - Musculoskeletal chest pain [Unknown]
  - Electrocardiogram T wave inversion [Unknown]
  - Cough [Unknown]
  - Mouth ulceration [Unknown]
  - Primary sequestrum [Unknown]
  - Bartholin^s cyst [Unknown]
  - Hiatus hernia [Unknown]
  - Spinal deformity [Unknown]
  - Osteosclerosis [Not Recovered/Not Resolved]
  - Lung infection [Unknown]
  - Bone lesion [Unknown]
  - Skin papilloma [Unknown]
  - Pleurisy [Unknown]
  - Lumbar vertebral fracture [Unknown]
  - Fluid overload [Unknown]
  - Chest pain [Recovering/Resolving]
  - Bone disorder [Unknown]
  - Tooth abscess [Unknown]
  - Pain [Unknown]
  - Pyuria [Unknown]
  - Laryngitis [Unknown]
  - Temporomandibular joint syndrome [Unknown]
  - Pneumonitis [Unknown]
  - Bone giant cell tumour [Unknown]
  - Cardiomegaly [Unknown]
  - Sympathetic posterior cervical syndrome [Unknown]
  - Migraine [Unknown]
  - Tricuspid valve incompetence [Unknown]
  - Vitreous floaters [Unknown]
  - Abdominal distension [Unknown]
  - Synovial cyst [Unknown]
  - Atelectasis [Unknown]
  - Tendonitis [Unknown]
  - Nasal congestion [Unknown]
  - Breast calcifications [Unknown]
  - Pyrexia [Unknown]
  - Osteonecrosis of jaw [Unknown]
  - Decreased interest [Unknown]
  - Drug hypersensitivity [Unknown]
  - Carpal tunnel syndrome [Unknown]
  - Occipital neuralgia [Unknown]
  - Engraftment syndrome [Unknown]
  - Spinal osteoarthritis [Unknown]
  - Chronic obstructive pulmonary disease [Unknown]
  - Emphysema [Unknown]
  - Pulmonary fibrosis [Unknown]
  - Hypoxia [Unknown]
  - Malignant neoplasm progression [Unknown]
  - Enthesopathy [Unknown]
  - Abdominal pain lower [Unknown]
  - Tenderness [Unknown]
  - Stress fracture [Unknown]
  - Thoracic vertebral fracture [Unknown]
  - Pain in extremity [Unknown]
  - General physical health deterioration [Unknown]
  - Infection [Unknown]
  - Blindness [Unknown]
  - Pharyngitis [Unknown]
  - Osteomyelitis [Unknown]
  - Neuropathy peripheral [Unknown]
  - Interstitial lung disease [Unknown]
  - Hypercholesterolaemia [Unknown]
  - Bursitis [Unknown]
  - Herpes zoster [Unknown]
  - Clostridium difficile colitis [Unknown]
  - Meralgia paraesthetica [Unknown]
  - Acute sinusitis [Unknown]
  - Monoclonal gammopathy [Unknown]
  - Large intestine polyp [Unknown]
  - Myalgia [Unknown]
  - Spinal disorder [Unknown]
  - Arthropathy [Unknown]
  - Cardiac failure congestive [Unknown]
  - Osteoarthritis [Unknown]
  - Hypophagia [Unknown]
  - Anxiety [Unknown]
  - Excessive granulation tissue [Unknown]
  - Ejection fraction decreased [Unknown]
  - Osteitis [Unknown]
  - Synovial rupture [Unknown]
  - Gout [Unknown]
  - Sepsis [Unknown]
  - Dysphonia [Unknown]
  - Bronchospasm [Unknown]
  - Bite [Unknown]
  - Respiratory tract congestion [Unknown]
  - Decreased appetite [Unknown]
  - Musculoskeletal discomfort [Unknown]
  - Pneumonia [Unknown]
  - Toothache [Recovering/Resolving]
  - Tooth fracture [Unknown]
  - Hallucination [Unknown]
  - Left ventricular hypertrophy [Unknown]
  - Aortic stenosis [Unknown]
  - Aortic valve disease [Unknown]
  - Haemorrhoids [Unknown]
  - Depression [Unknown]
  - Petechiae [Unknown]
  - Oral fibroma [Unknown]
  - Mitral valve calcification [Unknown]
  - Actinic keratosis [Unknown]
  - Intervertebral disc protrusion [Unknown]
  - Spinal pain [Unknown]
  - Pathological fracture [Unknown]
  - Spinal fracture [Unknown]

NARRATIVE: CASE EVENT DATE: 1999
